FAERS Safety Report 4693671-6 (Version None)
Quarter: 2005Q2

REPORT INFORMATION
  Report Type: 
  Country: None (occurrence: None)
  Receive Date: 20050616
  Receipt Date: 20050607
  Transmission Date: 20051028
  Serious: Yes (Other)
  Sender: FDA-Public Use
  Company Number: HQWYE317308JUN05

PATIENT

DRUGS (1)
  1. EFFEXOR [Suspect]
     Route: 064

REACTIONS (3)
  - CONVULSION NEONATAL [None]
  - DRUG EXPOSURE DURING PREGNANCY [None]
  - STATUS EPILEPTICUS [None]
